FAERS Safety Report 8340450 (Version 2)
Quarter: 2012Q4

REPORT INFORMATION
  Report Type: Spontaneous
  Country: US (occurrence: None)
  Receive Date: 20111209
  Receipt Date: 20120907
  Transmission Date: 20130627
  Serious: Yes (Other)
  Sender: FDA-Public Use
  Company Number: TH-2011-00394

PATIENT
  Age: 43 Year
  Sex: Male

DRUGS (3)
  1. EGRIFTA [Suspect]
     Indication: LIPODYSTROPHY ACQUIRED
     Dosage: 1 IN 1 D
     Dates: start: 201108
  2. LISINOPRIL [Concomitant]
  3. AMLODIPINE [Concomitant]

REACTIONS (13)
  - Diarrhoea [None]
  - Fatigue [None]
  - Asthenia [None]
  - Hypersomnia [None]
  - Dizziness [None]
  - Anxiety [None]
  - Insomnia [None]
  - Palpitations [None]
  - Depression [None]
  - Pain [None]
  - Blood pressure increased [None]
  - Nasal septum deviation [None]
  - Weight increased [None]
